FAERS Safety Report 23799328 (Version 2)
Quarter: 2024Q2

REPORT INFORMATION
  Report Type: Spontaneous
  Country: JP (occurrence: JP)
  Receive Date: 20240430
  Receipt Date: 20240508
  Transmission Date: 20240716
  Serious: No
  Sender: FDA-Public Use
  Company Number: JP-PHATHOM PHARMACEUTICALS INC.-2024PHT00235

PATIENT

DRUGS (1)
  1. VONOPRAZAN FUMARATE [Suspect]
     Active Substance: VONOPRAZAN FUMARATE
     Indication: Gastric ulcer haemorrhage
     Dosage: 20 MG, 2X/DAY
     Route: 048
     Dates: start: 20240422

REACTIONS (4)
  - No adverse event [Unknown]
  - Off label use [Unknown]
  - Product prescribing error [Unknown]
  - Overdose [Unknown]

NARRATIVE: CASE EVENT DATE: 20240422
